FAERS Safety Report 25038485 (Version 3)
Quarter: 2025Q4

REPORT INFORMATION
  Report Type: Report from Study
  Country: JP (occurrence: JP)
  Receive Date: 20250304
  Receipt Date: 20251027
  Transmission Date: 20260118
  Serious: Yes (Other)
  Sender: ASTELLAS
  Company Number: JP-ASTELLAS-2025-AER-007375

PATIENT
  Age: 8 Decade
  Sex: Male

DRUGS (10)
  1. VYLOY [Suspect]
     Active Substance: ZOLBETUXIMAB-CLZB
     Indication: Gastric cancer
     Dosage: AS PER THE PACKAGE INSERT, BUT BODY SURFACE AREA WAS UNKNOWN
     Route: 042
     Dates: start: 20241107
  2. VYLOY [Suspect]
     Active Substance: ZOLBETUXIMAB-CLZB
     Dosage: AT A REDUCED DOSE
     Route: 042
     Dates: start: 20250205, end: 20250205
  3. OXALIPLATIN [Suspect]
     Active Substance: OXALIPLATIN
     Indication: Gastric cancer
     Route: 065
  4. OXALIPLATIN [Suspect]
     Active Substance: OXALIPLATIN
     Dosage: AT A REDUCED DOSE
     Route: 065
  5. OLANZAPINE [Concomitant]
     Active Substance: OLANZAPINE
     Indication: Supportive care
     Route: 048
     Dates: start: 20241107
  6. DIPHENHYDRAMINE [Concomitant]
     Active Substance: DIPHENHYDRAMINE
     Indication: Supportive care
     Route: 048
     Dates: start: 20241107
  7. FAMOTIDINE [Concomitant]
     Active Substance: FAMOTIDINE
     Indication: Supportive care
     Route: 042
     Dates: start: 20241107
  8. DEXAMETHASONE [Concomitant]
     Active Substance: DEXAMETHASONE
     Indication: Supportive care
     Route: 042
     Dates: start: 20241107
  9. PALONOSETRON [Concomitant]
     Active Substance: PALONOSETRON
     Indication: Supportive care
     Route: 042
     Dates: start: 20241107
  10. FOSNETUPITANT [Concomitant]
     Active Substance: FOSNETUPITANT
     Indication: Supportive care
     Route: 042
     Dates: start: 20241107

REACTIONS (6)
  - Blood albumin decreased [Recovered/Resolved]
  - Malignant neoplasm progression [Not Recovered/Not Resolved]
  - Vomiting [Recovered/Resolved]
  - Hypoaesthesia [Not Recovered/Not Resolved]
  - Vomiting [Recovered/Resolved]
  - Nausea [Unknown]

NARRATIVE: CASE EVENT DATE: 20250114
